FAERS Safety Report 22649520 (Version 1)
Quarter: 2023Q2

REPORT INFORMATION
  Report Type: Spontaneous
  Country: US (occurrence: US)
  Receive Date: 20230628
  Receipt Date: 20230628
  Transmission Date: 20230721
  Serious: No
  Sender: FDA-Public Use
  Company Number: US-ABBVIE-5307508

PATIENT

DRUGS (2)
  1. SYNTHROID [Suspect]
     Active Substance: LEVOTHYROXINE SODIUM
     Indication: Product used for unknown indication
     Route: 048
  2. VITAMIN D NOS [Concomitant]
     Active Substance: VITAMIN D NOS
     Indication: Product used for unknown indication

REACTIONS (9)
  - Dyspepsia [Unknown]
  - Skin disorder [Unknown]
  - Myalgia [Unknown]
  - Arthralgia [Unknown]
  - Oedema [Unknown]
  - Diarrhoea [Unknown]
  - Insomnia [Unknown]
  - Arthritis [Unknown]
  - Back pain [Unknown]
